FAERS Safety Report 18682626 (Version 2)
Quarter: 2021Q1

REPORT INFORMATION
  Report Type: Report from Study
  Country: IT (occurrence: IT)
  Receive Date: 20201229
  Receipt Date: 20210107
  Transmission Date: 20210419
  Serious: Yes (Life-Threatening, Other)
  Sender: FDA-Public Use
  Company Number: IT-ACCORD-212596

PATIENT
  Age: 68 Year
  Sex: Female
  Weight: 55 kg

DRUGS (11)
  1. FOLINIC ACID [Concomitant]
     Active Substance: LEUCOVORIN
  2. LEVOPRAID [Concomitant]
  3. SOLDESAM [Concomitant]
     Active Substance: DEXAMETHASONE
  4. CREON [Concomitant]
     Active Substance: PANCRELIPASE AMYLASE\PANCRELIPASE LIPASE\PANCRELIPASE PROTEASE
  5. FLUOROURACIL. [Concomitant]
     Active Substance: FLUOROURACIL
  6. TRIMETON [Concomitant]
     Active Substance: CHLORPHENIRAMINE MALEATE
  7. IRINOTECAN [Concomitant]
     Active Substance: IRINOTECAN
  8. ONDANSETRON [Concomitant]
     Active Substance: ONDANSETRON
  9. PANTOPRAZOLE [Concomitant]
     Active Substance: PANTOPRAZOLE
  10. OXALIPLATIN. [Suspect]
     Active Substance: OXALIPLATIN
     Indication: PANCREATIC CARCINOMA
     Route: 042
     Dates: start: 20200831, end: 20201028
  11. ATROPINE SULFATE NOVASOREL [Concomitant]

REACTIONS (6)
  - Muscle rigidity [Recovered/Resolved]
  - Dysarthria [Recovered/Resolved]
  - Tongue oedema [Recovered/Resolved]
  - Product preparation error [Unknown]
  - Dyspnoea [Recovered/Resolved]
  - Medication error [Unknown]

NARRATIVE: CASE EVENT DATE: 20201028
